FAERS Safety Report 8791583 (Version 4)
Quarter: 2012Q4

REPORT INFORMATION
  Report Type: Spontaneous
  Country: US (occurrence: None)
  Receive Date: 20120913
  Receipt Date: 20121012
  Transmission Date: 20130627
  Serious: Yes (Other)
  Sender: FDA-Public Use
  Company Number: ADR-2012-01685

PATIENT
  Sex: Male

DRUGS (2)
  1. LIORESAL INTRATHECAL [Suspect]
     Indication: SPASTICITY
  2. LIORESAL INTRATHECAL [Suspect]
     Indication: CEREBRAL PALSY

REACTIONS (5)
  - Implant site oedema [None]
  - Device leakage [None]
  - Muscle spasticity [None]
  - Drug withdrawal syndrome [None]
  - Implant site effusion [None]
